FAERS Safety Report 11693876 (Version 1)
Quarter: 2015Q4

REPORT INFORMATION
  Report Type: Spontaneous
  Country: US (occurrence: US)
  Receive Date: 20151103
  Receipt Date: 20151103
  Transmission Date: 20160304
  Serious: No
  Sender: FDA-Public Use
  Company Number: PHEH2015US022265

PATIENT
  Sex: Female

DRUGS (1)
  1. TYKERB [Suspect]
     Active Substance: LAPATINIB DITOSYLATE
     Indication: NEOPLASM MALIGNANT
     Dosage: 4 DF, QD
     Route: 048

REACTIONS (4)
  - Hypoaesthesia [Unknown]
  - Oral pain [Unknown]
  - Onychoclasis [Unknown]
  - Impaired healing [Unknown]
